FAERS Safety Report 24044433 (Version 2)
Quarter: 2024Q3

REPORT INFORMATION
  Report Type: Spontaneous
  Country: GB (occurrence: GB)
  Receive Date: 20240703
  Receipt Date: 20240720
  Transmission Date: 20241017
  Serious: Yes (Other)
  Sender: TEVA
  Company Number: GB-MHRA-EMIS-10535-149626c3-76c2-40b7-9786-5f810a5aba9c

PATIENT
  Age: 66 Year
  Sex: Female
  Weight: 79 kg

DRUGS (3)
  1. LEVOFLOXACIN [Suspect]
     Active Substance: LEVOFLOXACIN
     Indication: Pneumonia
     Route: 065
     Dates: start: 20240607, end: 20240613
  2. ONCE HEEL BALM [Concomitant]
     Dosage: AS DIRECTED,  (DERMATONICS LTD)
     Route: 065
     Dates: start: 20240419, end: 20240604
  3. Spikevax [Concomitant]
     Dosage: 0.5 ML INTRAMUSCULAR,  XBB.1.5 COVID-19 MRNA VACCINE 0.1MG/1ML FOR INJECTION
     Route: 030
     Dates: start: 20240514

REACTIONS (1)
  - Tendonitis [Unknown]

NARRATIVE: CASE EVENT DATE: 20240617
